FAERS Safety Report 5259826-7 (Version None)
Quarter: 2007Q1

REPORT INFORMATION
  Report Type: 
  Country: None (occurrence: None)
  Receive Date: 20070307
  Receipt Date: 20070223
  Transmission Date: 20070707
  Serious: Yes (Hospitalization, Other)
  Sender: FDA-Public Use
  Company Number: 2007BI001570

PATIENT
  Age: 66 Year
  Sex: Female

DRUGS (14)
  1. AVONEX [Suspect]
     Indication: MULTIPLE SCLEROSIS
     Dosage: 30 UG;QW;IM
     Route: 030
     Dates: start: 19980713
  2. AVONEX [Suspect]
     Indication: MULTIPLE SCLEROSIS
     Dosage: 30 UG;QW;IM
     Route: 030
  3. BACLOFEN [Concomitant]
  4. LIDOCAINE [Concomitant]
  5. CARDIZEM CD [Concomitant]
  6. ALTACE [Concomitant]
  7. HYDROCHLOROTHIAZIDE [Concomitant]
  8. FOLIC ACID [Concomitant]
  9. NEURONTIN [Concomitant]
  10. DARVOCET [Concomitant]
  11. ZOLOFT [Concomitant]
  12. ASPIRIN [Concomitant]
  13. CALCIUM/VITAMIN D [Concomitant]
  14. ALEVE [Concomitant]

REACTIONS (9)
  - ARTHRITIS [None]
  - HYPERKERATOSIS [None]
  - HYPERTENSION [None]
  - INTERVERTEBRAL DISCITIS [None]
  - MENINGITIS BACTERIAL [None]
  - MULTIPLE SCLEROSIS RELAPSE [None]
  - RASH [None]
  - RENAL FAILURE ACUTE [None]
  - STAPHYLOCOCCAL INFECTION [None]
